FAERS Safety Report 17162788 (Version 1)
Quarter: 2019Q4

REPORT INFORMATION
  Report Type: Spontaneous
  Country: US (occurrence: US)
  Receive Date: 20191217
  Receipt Date: 20191217
  Transmission Date: 20200122
  Serious: No
  Sender: FDA-Public Use
  Company Number: NVSC2019US070219

PATIENT
  Sex: Female

DRUGS (1)
  1. POLYMYXIN B SULFATE,TRIMETHOPRIM [Suspect]
     Active Substance: POLYMYXIN B SULFATE\TRIMETHOPRIM
     Indication: PRODUCT USED FOR UNKNOWN INDICATION
     Dosage: UNK
     Route: 065

REACTIONS (4)
  - Eyelid oedema [Unknown]
  - Eye infection [Unknown]
  - Ocular hyperaemia [Unknown]
  - Lacrimation increased [Unknown]
